FAERS Safety Report 9372893 (Version 1)
Quarter: 2013Q2

REPORT INFORMATION
  Report Type: Spontaneous
  Country: IR (occurrence: None)
  Receive Date: 20130611
  Receipt Date: 20130611
  Transmission Date: 20140414
  Serious: Yes (Life-Threatening, Other)
  Sender: FDA-Public Use
  Company Number: 0239159

PATIENT
  Age: 18 Year
  Sex: Male

DRUGS (1)
  1. TACHOSIL (HUMAN FIBRINOGEN, HUMAN THROMBIN) (POULTICE OR PATCH) (HUMAN FIBRINOGEN, HUMAN THROMBIN) [Suspect]
     Indication: PROPHYLAXIS
     Dosage: SIZE -5X5
     Dates: start: 20130517

REACTIONS (2)
  - Drug ineffective [None]
  - Device leakage [None]
